FAERS Safety Report 6744775-5 (Version None)
Quarter: 2010Q2

REPORT INFORMATION
  Report Type: 
  Country: None (occurrence: None)
  Receive Date: 20100527
  Receipt Date: 20100201
  Transmission Date: 20101027
  Serious: No
  Sender: FDA-Public Use
  Company Number: US-BRISTOL-MYERS SQUIBB COMPANY-14958177

PATIENT
  Sex: Female
  Weight: 72 kg

DRUGS (1)
  1. ONGLYZA [Suspect]
     Indication: GLUCOSE TOLERANCE IMPAIRED
     Dosage: 1 DF=1 ONGLYZA SAMPLE

REACTIONS (1)
  - GASTROOESOPHAGEAL REFLUX DISEASE [None]
